FAERS Safety Report 11073662 (Version 1)
Quarter: 2015Q2

REPORT INFORMATION
  Report Type: Spontaneous
  Country: FR (occurrence: FR)
  Receive Date: 20150428
  Receipt Date: 20150428
  Transmission Date: 20150821
  Serious: Yes (Other)
  Sender: FDA-Public Use
  Company Number: PHHY2015FR047441

PATIENT
  Sex: Female

DRUGS (1)
  1. METHOTREXATE [Suspect]
     Active Substance: METHOTREXATE
     Indication: ECTOPIC PREGNANCY
     Dosage: 48 MG, 8 - 9 WEEKS BEFORE CONCEPTION
     Route: 065

REACTIONS (3)
  - Oligohydramnios [Unknown]
  - Congenital multiplex arthrogryposis [Unknown]
  - Premature rupture of membranes [Unknown]
